FAERS Safety Report 23042253 (Version 1)
Quarter: 2023Q4

REPORT INFORMATION
  Report Type: Report from Study
  Country: DE (occurrence: DE)
  Receive Date: 20231008
  Receipt Date: 20231008
  Transmission Date: 20240109
  Serious: Yes (Hospitalization)
  Sender: FDA-Public Use
  Company Number: DE-SA-2019SA204097

PATIENT
  Age: 61 Year
  Sex: Male
  Weight: 83 kg

DRUGS (1)
  1. DUPILUMAB [Suspect]
     Active Substance: DUPILUMAB
     Indication: Dermatitis atopic
     Dosage: UNK, QOW
     Route: 058
     Dates: start: 20180815

REACTIONS (4)
  - Rotator cuff syndrome [Recovered/Resolved]
  - Conjunctivitis [Not Recovered/Not Resolved]
  - Accident at work [Recovered/Resolved]
  - Solar dermatitis [Not Recovered/Not Resolved]

NARRATIVE: CASE EVENT DATE: 20181203
